FAERS Safety Report 23886232 (Version 1)
Quarter: 2024Q2

REPORT INFORMATION
  Report Type: Spontaneous
  Country: US (occurrence: US)
  Receive Date: 20240522
  Receipt Date: 20240522
  Transmission Date: 20240716
  Serious: No
  Sender: FDA-Public Use
  Company Number: US-MYLANLABS-2024M1039034

PATIENT
  Age: 63 Year
  Sex: Female
  Weight: 56.7 kg

DRUGS (2)
  1. ESTRADIOL [Suspect]
     Active Substance: ESTRADIOL
     Indication: Vulvovaginal pruritus
     Dosage: 1 GRAM, 3XW
     Route: 067
     Dates: start: 202310
  2. ESTRADIOL [Suspect]
     Active Substance: ESTRADIOL
     Indication: Vulvovaginal discomfort
     Dosage: UNK, BIWEEKLY(TWICE WEEKLY)
     Route: 067
     Dates: start: 20240101

REACTIONS (2)
  - Intentional product misuse [Unknown]
  - Product packaging quantity issue [Unknown]

NARRATIVE: CASE EVENT DATE: 20240101
